FAERS Safety Report 18307691 (Version 1)
Quarter: 2020Q3

REPORT INFORMATION
  Report Type: Spontaneous
  Country: IN (occurrence: IN)
  Receive Date: 20200924
  Receipt Date: 20200924
  Transmission Date: 20201103
  Serious: Yes (Death)
  Sender: FDA-Public Use
  Company Number: IN-PFIZER INC-2020358497

PATIENT
  Age: 54 Year
  Sex: Male

DRUGS (3)
  1. LORVIQUA [Suspect]
     Active Substance: LORLATINIB
     Dosage: 50 MG, 1X/DAY, FOR 5 DAYS
  2. LORVIQUA [Suspect]
     Active Substance: LORLATINIB
     Dosage: 75 MG, 1X/DAY, FOR 3 DAYS
  3. LORVIQUA [Suspect]
     Active Substance: LORLATINIB
     Dosage: 100 MG, 1X/DAY (FOR THE REMAINING MONTH)

REACTIONS (1)
  - Death [Fatal]

NARRATIVE: CASE EVENT DATE: 20200922
